FAERS Safety Report 16663128 (Version 1)
Quarter: 2019Q3

REPORT INFORMATION
  Report Type: Spontaneous
  Country: FR (occurrence: FR)
  Receive Date: 20190802
  Receipt Date: 20190802
  Transmission Date: 20191004
  Serious: Yes (Other)
  Sender: FDA-Public Use
  Company Number: FR-EXELIXIS-CABO-18017789

PATIENT
  Age: 71 Year
  Sex: Male
  Weight: 85.5 kg

DRUGS (8)
  1. CABOMETYX [Suspect]
     Active Substance: CABOZANTINIB S-MALATE
     Indication: RENAL NEOPLASM
     Dosage: 200 MG IN 7 DAYS
     Route: 048
     Dates: start: 201708, end: 20180807
  2. NOCTAMIDE [Concomitant]
     Active Substance: LORMETAZEPAM
     Dosage: ()
  3. INEXIUM [Concomitant]
     Active Substance: ESOMEPRAZOLE
     Dosage: ()
  4. FUROSEMIDE. [Concomitant]
     Active Substance: FUROSEMIDE
     Dosage: ()
  5. DIFFU K [Concomitant]
     Active Substance: POTASSIUM CHLORIDE
     Dosage: ()
  6. UROREC [Concomitant]
     Active Substance: SILODOSIN
     Dosage: ()
  7. LYRICA [Concomitant]
     Active Substance: PREGABALIN
     Dosage: ()
  8. OXYCODONE [Concomitant]
     Active Substance: OXYCODONE
     Dosage: ()

REACTIONS (1)
  - Palmar-plantar erythrodysaesthesia syndrome [Recovering/Resolving]

NARRATIVE: CASE EVENT DATE: 20180807
